FAERS Safety Report 8113697-X (Version None)
Quarter: 2012Q1

REPORT INFORMATION
  Report Type: 
  Country: None (occurrence: None)
  Receive Date: 20120203
  Receipt Date: 20120202
  Transmission Date: 20120608
  Serious: Yes (Other)
  Sender: FDA-Public Use
  Company Number: US-AMGEN-USASP2012006999

PATIENT
  Sex: Female

DRUGS (5)
  1. OXAPROZIN [Concomitant]
  2. CARBOPLATIN [Concomitant]
     Indication: BREAST CANCER
  3. NEUPOGEN [Suspect]
     Indication: NEUTROPENIA
     Dosage: UNK
     Dates: start: 20111101
  4. TAXOTERE [Concomitant]
     Indication: BREAST CANCER
  5. OMEPRAZOLE [Concomitant]
     Indication: GASTROOESOPHAGEAL REFLUX DISEASE

REACTIONS (4)
  - RASH [None]
  - BONE PAIN [None]
  - OEDEMA PERIPHERAL [None]
  - DRUG HYPERSENSITIVITY [None]
